FAERS Safety Report 14923441 (Version 2)
Quarter: 2018Q2

REPORT INFORMATION
  Report Type: Spontaneous
  Country: US (occurrence: US)
  Receive Date: 20180522
  Receipt Date: 20180618
  Transmission Date: 20180711
  Serious: Yes (Death)
  Sender: FDA-Public Use
  Company Number: US-UNITED THERAPEUTICS-UNT-2018-007150

PATIENT
  Age: 73 Year
  Sex: Female

DRUGS (1)
  1. REMODULIN [Suspect]
     Active Substance: TREPROSTINIL
     Indication: PULMONARY ARTERIAL HYPERTENSION
     Dosage: 0.0423 ?G/KG, CONTINUING
     Route: 058
     Dates: start: 20180110, end: 20180516

REACTIONS (1)
  - Death [Fatal]

NARRATIVE: CASE EVENT DATE: 20180516
